FAERS Safety Report 22341902 (Version 2)
Quarter: 2023Q2

REPORT INFORMATION
  Report Type: Report from Study
  Country: US (occurrence: US)
  Receive Date: 20230518
  Receipt Date: 20230530
  Transmission Date: 20230721
  Serious: Yes (Other)
  Sender: FDA-Public Use
  Company Number: US-AIMMUNE THERAPEUTICS, INC.-2023AIMT00435

PATIENT

DRUGS (10)
  1. ALLERGENIC EXTRACT- PEANUT ARACHIS HYPOGAEA [Suspect]
     Active Substance: ALLERGENIC EXTRACT- PEANUT ARACHIS HYPOGAEA
     Indication: Food allergy
     Dosage: IDE (0.5MG-6MG), ONCE
     Route: 048
     Dates: start: 20211221, end: 20211221
  2. ALLERGENIC EXTRACT- PEANUT ARACHIS HYPOGAEA [Suspect]
     Active Substance: ALLERGENIC EXTRACT- PEANUT ARACHIS HYPOGAEA
     Dosage: 300 MG, 1X/DAY
     Route: 048
     Dates: start: 20220510, end: 202210
  3. ALLERGENIC EXTRACT- PEANUT ARACHIS HYPOGAEA [Suspect]
     Active Substance: ALLERGENIC EXTRACT- PEANUT ARACHIS HYPOGAEA
     Dosage: 300 MG, ONCE, LAST DOSE PRIOR FIRST REACTION
     Route: 048
     Dates: start: 202210, end: 202210
  4. ALLERGENIC EXTRACT- PEANUT ARACHIS HYPOGAEA [Suspect]
     Active Substance: ALLERGENIC EXTRACT- PEANUT ARACHIS HYPOGAEA
     Dosage: 300 MG, ONCE, LAST DOSE PRIOR SKIPPED DOSE
     Route: 048
     Dates: start: 20221011, end: 20221011
  5. ALLERGENIC EXTRACT- PEANUT ARACHIS HYPOGAEA [Suspect]
     Active Substance: ALLERGENIC EXTRACT- PEANUT ARACHIS HYPOGAEA
     Dosage: 75 MG, ONCE, DOSE DECREASED
     Route: 048
     Dates: start: 202210, end: 202210
  6. ALLERGENIC EXTRACT- PEANUT ARACHIS HYPOGAEA [Suspect]
     Active Substance: ALLERGENIC EXTRACT- PEANUT ARACHIS HYPOGAEA
     Dosage: 300 MG, 1X/DAY
     Route: 048
     Dates: start: 202210, end: 202305
  7. ALLERGENIC EXTRACT- PEANUT ARACHIS HYPOGAEA [Suspect]
     Active Substance: ALLERGENIC EXTRACT- PEANUT ARACHIS HYPOGAEA
     Dosage: 300 MG, ONCE, LAST DOSE PRIOR SECOND REACTION
     Route: 048
     Dates: start: 20230301, end: 20230301
  8. ALLERGENIC EXTRACT- PEANUT ARACHIS HYPOGAEA [Suspect]
     Active Substance: ALLERGENIC EXTRACT- PEANUT ARACHIS HYPOGAEA
     Dosage: 300 MG, ONCE, LAST DOSE PRIOR REACTION
     Route: 048
     Dates: start: 20230426, end: 20230426
  9. ALLERGENIC EXTRACT- PEANUT ARACHIS HYPOGAEA [Suspect]
     Active Substance: ALLERGENIC EXTRACT- PEANUT ARACHIS HYPOGAEA
     Dosage: 300 MG, ONCE, LAST DOSE PRIOR REACTION
     Route: 048
     Dates: start: 20230428, end: 20230428
  10. ALLERGENIC EXTRACT- PEANUT ARACHIS HYPOGAEA [Suspect]
     Active Substance: ALLERGENIC EXTRACT- PEANUT ARACHIS HYPOGAEA
     Dosage: 120 MG, 1X/DAY, DOSE DECREASED
     Route: 048
     Dates: start: 202305

REACTIONS (17)
  - Anaphylactic reaction [Recovered/Resolved]
  - Flushing [Unknown]
  - Cough [Recovered/Resolved]
  - Pruritus [Recovered/Resolved]
  - Abdominal pain upper [Recovered/Resolved]
  - Urticaria [Recovered/Resolved]
  - Pyrexia [Recovered/Resolved]
  - Nausea [Recovered/Resolved]
  - Erythema [Recovered/Resolved]
  - Vomiting [Recovered/Resolved]
  - Diarrhoea [Recovered/Resolved]
  - Wheezing [Recovered/Resolved]
  - Secretion discharge [Recovered/Resolved]
  - Blood pressure increased [Unknown]
  - Product dose omission issue [Recovered/Resolved]
  - Wrong technique in product usage process [Unknown]
  - Inappropriate schedule of product administration [Unknown]

NARRATIVE: CASE EVENT DATE: 20221001
